FAERS Safety Report 8211493-6 (Version None)
Quarter: 2012Q1

REPORT INFORMATION
  Report Type: 
  Country: None (occurrence: None)
  Receive Date: 20120315
  Receipt Date: 20120312
  Transmission Date: 20120608
  Serious: Yes (Other)
  Sender: FDA-Public Use
  Company Number: US-PFIZER INC-2012045129

PATIENT
  Sex: Female
  Weight: 72.562 kg

DRUGS (4)
  1. REVATIO [Suspect]
     Indication: LUNG OPERATION
     Dosage: 40 MG, 3X/DAY
     Route: 048
  2. ACETAMINOPHEN [Concomitant]
     Indication: ARTHRITIS
     Dosage: 500 MG, AS NEEDED
     Route: 048
  3. REVATIO [Suspect]
     Indication: PULMONARY HYPERTENSION
  4. REVATIO [Suspect]
     Indication: CARDIAC OPERATION
     Dosage: 20 MG, 3X/DAY
     Route: 048

REACTIONS (1)
  - BILIARY CYST [None]
